FAERS Safety Report 6575945-7 (Version None)
Quarter: 2010Q1

REPORT INFORMATION
  Report Type: 
  Country: None (occurrence: None)
  Receive Date: 20100209
  Receipt Date: 20100127
  Transmission Date: 20100710
  Serious: Yes (Other)
  Sender: FDA-Public Use
  Company Number: US-ELI_LILLY_AND_COMPANY-US200911005251

PATIENT
  Sex: Female
  Weight: 51.247 kg

DRUGS (4)
  1. FORTEO [Suspect]
     Indication: OSTEOPOROTIC FRACTURE
     Dosage: 20 UG, UNK
     Route: 058
     Dates: start: 20070916, end: 20090819
  2. PREMARIN [Concomitant]
     Dosage: 0.325 MG, UNK
     Route: 048
     Dates: start: 19830101
  3. CALCIUM + VITAMIN D [Concomitant]
     Route: 048
     Dates: start: 20030101
  4. RECLAST [Concomitant]
     Dosage: UNK, OTHER
     Route: 042
     Dates: start: 20090921

REACTIONS (3)
  - BACK PAIN [None]
  - OSTEOMYELITIS [None]
  - PAIN IN EXTREMITY [None]
